FAERS Safety Report 13102740 (Version 1)
Quarter: 2017Q1

REPORT INFORMATION
  Report Type: Report from Study
  Country: US (occurrence: US)
  Receive Date: 20170110
  Receipt Date: 20170110
  Transmission Date: 20170428
  Serious: Yes (Hospitalization)
  Sender: FDA-Public Use
  Company Number: US-PFIZER INC-2007005667

PATIENT
  Age: 74 Year
  Sex: Male
  Weight: 87 kg

DRUGS (12)
  1. TYLENOL [Concomitant]
     Active Substance: ACETAMINOPHEN
     Dosage: 325 MG, UNK
     Route: 048
     Dates: start: 1990
  2. XALATAN [Concomitant]
     Active Substance: LATANOPROST
     Dosage: 2.5 ML, UNK
     Route: 047
     Dates: start: 2003
  3. AXITINIB [Suspect]
     Active Substance: AXITINIB
     Indication: HEPATIC CANCER
     Dosage: 5 MG, 2X/DAY
     Route: 048
     Dates: start: 20060909
  4. SENNOSIDES. [Concomitant]
     Active Substance: SENNOSIDES
     Dosage: 25 MG, UNK
     Route: 048
     Dates: start: 2004
  5. PACLITAXEL. [Suspect]
     Active Substance: PACLITAXEL
     Indication: HEPATIC CANCER
     Dosage: 412 MG, EVERY 3 WEEKS
     Route: 042
     Dates: start: 20060912
  6. ALLOPURINOL. [Concomitant]
     Active Substance: ALLOPURINOL
     Dosage: 100 MG, UNK
     Route: 048
     Dates: start: 2003
  7. ACTOS [Concomitant]
     Active Substance: PIOGLITAZONE HYDROCHLORIDE
     Dosage: 30 MG, UNK
     Route: 048
     Dates: start: 2003
  8. TYLENOL PM [Concomitant]
     Active Substance: ACETAMINOPHEN\DIPHENHYDRAMINE
     Dosage: 325 MG, UNK
     Route: 048
     Dates: start: 2004
  9. CARBOPLATIN. [Suspect]
     Active Substance: CARBOPLATIN
     Indication: HEPATIC CANCER
     Dosage: 558 MG, EVERY 3 WEEKS
     Route: 042
     Dates: start: 20060912
  10. LOTREL [Concomitant]
     Active Substance: AMLODIPINE BESYLATE\BENAZEPRIL HYDROCHLORIDE
     Dosage: 5/10
     Route: 048
     Dates: start: 20060908
  11. LEVOTHYROXINE. [Concomitant]
     Active Substance: LEVOTHYROXINE
     Dosage: 0.112 MG, UNK
     Route: 048
     Dates: start: 2000
  12. CRESTOR [Concomitant]
     Active Substance: ROSUVASTATIN CALCIUM
     Dosage: 10 MG, UNK
     Route: 048
     Dates: start: 200602

REACTIONS (2)
  - Febrile neutropenia [Recovered/Resolved]
  - Thrombocytopenia [Recovered/Resolved]

NARRATIVE: CASE EVENT DATE: 20060918
